FAERS Safety Report 4940418-1 (Version None)
Quarter: 2006Q1

REPORT INFORMATION
  Report Type: 
  Country: None (occurrence: None)
  Receive Date: 20060131
  Receipt Date: 20051213
  Transmission Date: 20060701
  Serious: No
  Sender: FDA-Public Use
  Company Number: 200520542US

PATIENT

DRUGS (1)
  1. KETEK [Suspect]
     Indication: INFECTION
     Dosage: 800 MG

REACTIONS (2)
  - MALAISE [None]
  - VISUAL DISTURBANCE [None]
